FAERS Safety Report 9019402 (Version 5)
Quarter: 2013Q3

REPORT INFORMATION
  Report Type: Report from Study
  Country: US (occurrence: US)
  Receive Date: 20130118
  Receipt Date: 20130918
  Transmission Date: 20140515
  Serious: Yes (Hospitalization)
  Sender: FDA-Public Use
  Company Number: US-PFIZER INC-2013018562

PATIENT
  Age: 70 Year
  Sex: Female
  Weight: 126 kg

DRUGS (23)
  1. BLINDED CELECOXIB [Suspect]
     Indication: OSTEOARTHRITIS
     Dosage: UNK, 3X/DAY
     Route: 048
     Dates: start: 20130110, end: 20130110
  2. BLINDED IBUPROFEN [Suspect]
     Indication: OSTEOARTHRITIS
     Dosage: UNK, 3X/DAY
     Route: 048
     Dates: start: 20130110, end: 20130110
  3. BLINDED IBUPROFEN [Suspect]
     Indication: OSTEOARTHRITIS
     Dosage: UNK, 3X/DAY
     Route: 048
     Dates: start: 20130110, end: 20130110
  4. BLINDED IBUPROFEN [Suspect]
     Indication: OSTEOARTHRITIS
     Dosage: UNK, 3X/DAY
     Route: 048
     Dates: start: 20130110, end: 20130110
  5. BLINDED NAPROXEN [Suspect]
     Indication: OSTEOARTHRITIS
     Dosage: UNK, 3X/DAY
     Route: 048
     Dates: start: 20130110, end: 20130110
  6. BLINDED NAPROXEN [Suspect]
     Indication: OSTEOARTHRITIS
     Dosage: UNK, 3X/DAY
     Route: 048
     Dates: start: 20130110, end: 20130110
  7. BLINDED NAPROXEN [Suspect]
     Indication: OSTEOARTHRITIS
     Dosage: UNK, 3X/DAY
     Route: 048
     Dates: start: 20130110, end: 20130110
  8. BLINDED PLACEBO [Suspect]
     Indication: OSTEOARTHRITIS
     Dosage: UNK, 3X/DAY
     Route: 048
     Dates: start: 20130110, end: 20130110
  9. ZITHROMAX [Suspect]
     Indication: SINUSITIS
     Dosage: DAY1, 500 MG, 1X/DAY
     Route: 048
     Dates: start: 20121228, end: 20121228
  10. ZITHROMAX [Suspect]
     Dosage: DAY2 - DAY5, 250 MG, 1X/DAY
     Route: 048
     Dates: start: 20121229, end: 20130101
  11. AMOXAL [Suspect]
     Indication: SINUSITIS
     Dosage: 875 MG, 2X/DAY
     Route: 048
     Dates: start: 20130109, end: 20130110
  12. NEXIUM [Concomitant]
     Indication: PROPHYLAXIS
     Dosage: 20 MG, 1X/DAY
     Route: 048
     Dates: start: 20130109
  13. HYDROCODONE [Concomitant]
     Indication: OSTEOARTHRITIS
     Dosage: UNK
     Route: 048
     Dates: start: 1998
  14. ZANAFLEX [Concomitant]
     Indication: SCIATICA
     Dosage: UNK
     Route: 048
     Dates: start: 2011
  15. THEO-DUR [Concomitant]
     Indication: CHRONIC OBSTRUCTIVE PULMONARY DISEASE
     Dosage: UNK
     Route: 048
     Dates: start: 2005
  16. GLUCOPHAGE [Concomitant]
     Indication: TYPE 2 DIABETES MELLITUS
     Dosage: UNK
     Route: 048
     Dates: start: 2011
  17. HUMULIN [Concomitant]
     Indication: TYPE 2 DIABETES MELLITUS
     Dosage: 70/30, UNK
     Route: 058
     Dates: start: 2011
  18. AMARYL [Concomitant]
     Indication: TYPE 2 DIABETES MELLITUS
     Dosage: UNK
     Route: 048
     Dates: start: 2011
  19. ZYLOPRIM [Concomitant]
     Indication: GOUT
     Dosage: UNK
     Route: 048
     Dates: start: 2011
  20. BENADRYL [Concomitant]
     Indication: SEASONAL ALLERGY
     Dosage: UNK
     Route: 048
     Dates: start: 2010
  21. PRINIVIL [Concomitant]
     Indication: HYPERTENSION
     Dosage: 20 MG, 1X/DAY
     Route: 048
     Dates: start: 20130105
  22. NOVOLIN 70/30 [Concomitant]
     Indication: TYPE 2 DIABETES MELLITUS
     Dosage: 20 MG, HS
     Route: 058
     Dates: start: 20130105
  23. NASAL SALINE [Concomitant]
     Indication: SINUSITIS
     Dosage: 1 DF, AS NEEDED
     Route: 045
     Dates: start: 20121228

REACTIONS (1)
  - Gastroenteritis [Recovered/Resolved]
